FAERS Safety Report 6388041-9 (Version None)
Quarter: 2009Q4

REPORT INFORMATION
  Report Type: 
  Country: None (occurrence: None)
  Receive Date: 20091005
  Receipt Date: 20090921
  Transmission Date: 20100525
  Serious: Yes (Other)
  Sender: FDA-Public Use
  Company Number: KR-GENENTECH-291114

PATIENT

DRUGS (1)
  1. BEVACIZUMAB [Suspect]
     Indication: MACULAR OEDEMA
     Dosage: 1.25 MG, UNK
     Route: 031

REACTIONS (1)
  - INTRAOCULAR PRESSURE INCREASED [None]
